FAERS Safety Report 9132473 (Version 2)
Quarter: 2013Q1

REPORT INFORMATION
  Report Type: Spontaneous
  Country: DE (occurrence: DE)
  Receive Date: 20130301
  Receipt Date: 20130313
  Transmission Date: 20140127
  Serious: Yes (Congenital Anomaly)
  Sender: FDA-Public Use
  Company Number: DE-ROCHE-1194288

PATIENT
  Age: 0 Year
  Sex: Male

DRUGS (3)
  1. MYCOPHENOLATE MOFETIL [Suspect]
     Indication: PRODUCT USED FOR UNKNOWN INDICATION
     Route: 064
  2. PREDNISOLONE [Concomitant]
     Route: 064
  3. BETAMETHASONE [Concomitant]
     Route: 064
     Dates: start: 20110828, end: 20110829

REACTIONS (7)
  - Microtia [Not Recovered/Not Resolved]
  - External auditory canal atresia [Not Recovered/Not Resolved]
  - Atrial septal defect [Unknown]
  - Wolff-Parkinson-White syndrome [Not Recovered/Not Resolved]
  - Congenital arterial malformation [Unknown]
  - Patent ductus arteriosus [Unknown]
  - Maternal exposure timing unspecified [Unknown]
